FAERS Safety Report 4844897-X (Version None)
Quarter: 2005Q4

REPORT INFORMATION
  Report Type: 
  Country: None (occurrence: None)
  Receive Date: 20051205
  Receipt Date: 20051201
  Transmission Date: 20060501
  Serious: Yes (Life-Threatening)
  Sender: FDA-Public Use
  Company Number: JP-SANOFI-SYNTHELABO-F01200502613

PATIENT
  Age: 70 Year
  Sex: Male

DRUGS (1)
  1. OXALIPLATIN [Suspect]
     Indication: LARGE INTESTINE CARCINOMA
     Dosage: 140 MG
     Route: 042
     Dates: start: 20051117, end: 20051117

REACTIONS (2)
  - LACTIC ACIDOSIS [None]
  - RENAL DISORDER [None]
